FAERS Safety Report 15437777 (Version 5)
Quarter: 2019Q2

REPORT INFORMATION
  Report Type: Report from Study
  Country: None (occurrence: CH)
  Receive Date: 20180927
  Receipt Date: 20190410
  Transmission Date: 20190711
  Serious: Yes (Hospitalization)
  Sender: FDA-Public Use
  Company Number: CH-ABBVIE-18S-151-2496532-00

PATIENT
  Age: 73 Year
  Sex: Male

DRUGS (8)
  1. DUODOPA [Suspect]
     Active Substance: CARBIDOPA\LEVODOPA
     Dosage: MORNING DOSE 8ML; CONTINUOUS RATE-DAY 4.6ML/H; EXTRA DOSE 1.5ML/H, 16 H THERAPY
     Route: 050
  2. RIVOTRIL [Concomitant]
     Active Substance: CLONAZEPAM
     Indication: IRREGULAR SLEEP WAKE RHYTHM DISORDER
  3. DICLOFENAC [Suspect]
     Active Substance: DICLOFENAC
     Indication: PRODUCT USED FOR UNKNOWN INDICATION
     Route: 065
  4. DUODOPA [Suspect]
     Active Substance: CARBIDOPA\LEVODOPA
     Indication: PARKINSON^S DISEASE
     Route: 050
     Dates: start: 20170320, end: 20170607
  5. DUODOPA [Suspect]
     Active Substance: CARBIDOPA\LEVODOPA
     Dosage: MORNING DOSE 8ML; CONTINUOUS RATE-DAY 5.2ML/H; EXTRA DOSE 1.5ML/H; 16H THERAPY
     Route: 050
     Dates: start: 20170607, end: 20180206
  6. DUODOPA [Suspect]
     Active Substance: CARBIDOPA\LEVODOPA
     Dosage: MORNING DOSE 8ML; CONTINUOUS RATE-DAY 5.1ML/H; EXTRA DOSE 1.5ML/H; 16H THERAPY
     Route: 050
     Dates: start: 20180206
  7. LITHIUM. [Suspect]
     Active Substance: LITHIUM
     Indication: PRODUCT USED FOR UNKNOWN INDICATION
     Dosage: SINCE MANY YEARS
     Route: 065
  8. SAFINAMIDA [Concomitant]
     Indication: PRODUCT USED FOR UNKNOWN INDICATION
     Dates: start: 201602

REACTIONS (24)
  - Stoma site discharge [Not Recovered/Not Resolved]
  - Cholelithiasis [Recovered/Resolved]
  - Dyskinesia [Not Recovered/Not Resolved]
  - Fall [Recovered/Resolved]
  - Sleep attacks [Not Recovered/Not Resolved]
  - Device issue [Recovered/Resolved]
  - Vertigo [Recovered/Resolved]
  - Device breakage [Recovered/Resolved]
  - Salivary hypersecretion [Not Recovered/Not Resolved]
  - Impulse-control disorder [Not Recovered/Not Resolved]
  - Depression [Not Recovered/Not Resolved]
  - Stoma site inflammation [Not Recovered/Not Resolved]
  - Dizziness [Unknown]
  - Device issue [Recovered/Resolved]
  - Disease susceptibility [Not Recovered/Not Resolved]
  - Excessive granulation tissue [Unknown]
  - Stoma site erythema [Unknown]
  - Stoma site pain [Not Recovered/Not Resolved]
  - Unevaluable event [Not Recovered/Not Resolved]
  - Insomnia [Not Recovered/Not Resolved]
  - Constipation [Not Recovered/Not Resolved]
  - Wound [Recovered/Resolved]
  - Overdose [Recovered/Resolved]
  - Infection [Not Recovered/Not Resolved]

NARRATIVE: CASE EVENT DATE: 2017
